FAERS Safety Report 18502948 (Version 1)
Quarter: 2020Q4

REPORT INFORMATION
  Report Type: Spontaneous
  Country: US (occurrence: US)
  Receive Date: 20201113
  Receipt Date: 20201113
  Transmission Date: 20210114
  Serious: No
  Sender: FDA-Public Use
  Company Number: US-PERRIGO-20US012382

PATIENT
  Sex: Female
  Weight: 43.08 kg

DRUGS (3)
  1. GLIPIZIDE. [Concomitant]
     Active Substance: GLIPIZIDE
     Indication: DIABETES MELLITUS
     Dosage: UNKNOWN, NIGHTLY
     Route: 048
  2. BUDESONIDE. [Suspect]
     Active Substance: BUDESONIDE
     Dosage: 3 MG, BID
     Route: 048
     Dates: start: 2019
  3. BUDESONIDE. [Suspect]
     Active Substance: BUDESONIDE
     Indication: COLITIS MICROSCOPIC
     Dosage: 3 MG, TID
     Route: 048
     Dates: start: 2014

REACTIONS (4)
  - Diarrhoea [Not Recovered/Not Resolved]
  - Therapeutic response unexpected [Unknown]
  - Weight decreased [Not Recovered/Not Resolved]
  - Drug ineffective for unapproved indication [Unknown]

NARRATIVE: CASE EVENT DATE: 2014
